FAERS Safety Report 20339044 (Version 1)
Quarter: 2022Q1

REPORT INFORMATION
  Report Type: Spontaneous
  Country: CN (occurrence: CN)
  Receive Date: 20220117
  Receipt Date: 20220117
  Transmission Date: 20220423
  Serious: Yes (Other)
  Sender: FDA-Public Use
  Company Number: CN-ABBVIE-22K-035-4234649-00

PATIENT
  Age: 79 Year
  Sex: Male

DRUGS (3)
  1. VALPROATE SODIUM [Suspect]
     Active Substance: VALPROATE SODIUM
     Indication: Cerebral haemorrhage
     Route: 048
     Dates: start: 20181003, end: 20181007
  2. SODIUM ESCINATE [Suspect]
     Active Substance: SODIUM ESCINATE
     Indication: Cerebral haemorrhage
     Route: 041
     Dates: start: 20181003, end: 20181007
  3. SODIUM CHLORIDE [Concomitant]
     Active Substance: SODIUM CHLORIDE
     Indication: Product used for unknown indication
     Dates: start: 20181009

REACTIONS (1)
  - Renal impairment [Recovering/Resolving]

NARRATIVE: CASE EVENT DATE: 20181007
